FAERS Safety Report 5091979-6 (Version None)
Quarter: 2006Q3

REPORT INFORMATION
  Report Type: 
  Country: None (occurrence: None)
  Receive Date: 20060824
  Receipt Date: 20060809
  Transmission Date: 20061208
  Serious: No
  Sender: FDA-Public Use
  Company Number: 2006-146794-NL

PATIENT
  Age: 46 Year
  Sex: Female

DRUGS (8)
  1. MIRTAZAPINE [Suspect]
     Indication: DEPRESSION
     Dosage: 15 MG; ORAL
     Route: 048
     Dates: start: 20060418, end: 20060601
  2. BECLOMETHASONE DIPROPIONATE [Concomitant]
  3. DF118 [Concomitant]
  4. DIAZEPAM [Concomitant]
  5. IBUPROFEN [Concomitant]
  6. LANSOPRAZOLE [Concomitant]
  7. METHADONE HCL [Concomitant]
  8. SALBUTAMOL SULFATE [Concomitant]

REACTIONS (5)
  - ABDOMINAL DISTENSION [None]
  - ABDOMINAL PAIN [None]
  - NAUSEA [None]
  - OEDEMA PERIPHERAL [None]
  - PAIN [None]
